FAERS Safety Report 4456977-1 (Version None)
Quarter: 2004Q3

REPORT INFORMATION
  Report Type: 
  Country: None (occurrence: None)
  Receive Date: 20040923
  Receipt Date: 20040921
  Transmission Date: 20050211
  Serious: Yes (Life-Threatening, Hospitalization)
  Sender: FDA-Public Use
  Company Number: US-JNJFOC-20040504699

PATIENT
  Sex: Female
  Weight: 52.62 kg

DRUGS (6)
  1. CONCERTA [Suspect]
     Route: 049
     Dates: start: 20010101, end: 20040521
  2. NEO-SYNEPHRINE [Interacting]
     Dosage: 1%, TWO TO THREE SPRAYS, NASAL
     Route: 045
     Dates: start: 20040521, end: 20040521
  3. PROPOFOL [Suspect]
     Dates: start: 20040521, end: 20040521
  4. FENTANYL [Concomitant]
     Dates: start: 20040521, end: 20040521
  5. MIDAZOLAM HCL [Concomitant]
     Dates: start: 20040521, end: 20040521
  6. ROCURONIUM [Concomitant]
     Dates: start: 20040521, end: 20040521

REACTIONS (6)
  - ACUTE PULMONARY OEDEMA [None]
  - BRADYCARDIA [None]
  - DRUG INTERACTION [None]
  - MALIGNANT HYPERTENSION [None]
  - PROCEDURAL COMPLICATION [None]
  - VENTRICULAR TACHYCARDIA [None]
